FAERS Safety Report 23493675 (Version 4)
Quarter: 2024Q1

REPORT INFORMATION
  Report Type: Spontaneous
  Country: US (occurrence: US)
  Receive Date: 20240207
  Receipt Date: 20240329
  Transmission Date: 20240410
  Serious: Yes (Hospitalization)
  Sender: FDA-Public Use
  Company Number: US-SA-SAC20240131000007

PATIENT
  Age: 30 Year
  Sex: Male

DRUGS (2)
  1. DUPIXENT [Suspect]
     Active Substance: DUPILUMAB
     Indication: Dermatitis
     Dosage: 300 MG, QOW
     Route: 058
  2. PREDNISONE [Concomitant]
     Active Substance: PREDNISONE
     Indication: Dermatitis
     Dosage: 20 MG, QD

REACTIONS (12)
  - Norovirus infection [Unknown]
  - Dehydration [Unknown]
  - Vomiting [Unknown]
  - Pruritus [Unknown]
  - Sleep disorder due to a general medical condition [Unknown]
  - Skin weeping [Unknown]
  - Skin fissures [Unknown]
  - Eye irritation [Unknown]
  - Dermatitis [Unknown]
  - Dry skin [Unknown]
  - Skin exfoliation [Unknown]
  - Drug ineffective for unapproved indication [Unknown]
